FAERS Safety Report 16968134 (Version 2)
Quarter: 2020Q2

REPORT INFORMATION
  Report Type: Report from Study
  Country: FR (occurrence: FR)
  Receive Date: 20191028
  Receipt Date: 20200505
  Transmission Date: 20200713
  Serious: Yes (Hospitalization, Other)
  Sender: FDA-Public Use
  Company Number: FR-BAUSCH-BL-2019-058999

PATIENT
  Age: 62 Year
  Sex: Female

DRUGS (4)
  1. MESTINON [Suspect]
     Active Substance: PYRIDOSTIGMINE BROMIDE
     Indication: MYASTHENIC SYNDROME
     Route: 065
     Dates: start: 20071220, end: 20140328
  2. CELLCEPT [Suspect]
     Active Substance: MYCOPHENOLATE MOFETIL\MYCOPHENOLATE MOFETIL HYDROCHLORIDE
     Indication: MYASTHENIC SYNDROME
     Route: 065
     Dates: start: 20090116, end: 20120914
  3. FIRDAPSE [Suspect]
     Active Substance: AMIFAMPRIDINE
     Indication: MYASTHENIC SYNDROME
     Route: 048
     Dates: start: 20101118, end: 20140328
  4. SOLUPRED [PREDNISOLONE] [Suspect]
     Active Substance: PREDNISOLONE
     Indication: MYASTHENIC SYNDROME
     Route: 065

REACTIONS (1)
  - Pseudomonas infection [Recovered/Resolved with Sequelae]

NARRATIVE: CASE EVENT DATE: 20120612
